FAERS Safety Report 5944969-2 (Version None)
Quarter: 2008Q4

REPORT INFORMATION
  Report Type: 
  Country: None (occurrence: None)
  Receive Date: 20081107
  Receipt Date: 20081029
  Transmission Date: 20090506
  Serious: Yes (Death, Hospitalization)
  Sender: FDA-Public Use
  Company Number: BR-MERCK-0811USA00767

PATIENT
  Age: 23 Year
  Sex: Female

DRUGS (1)
  1. DECADRON [Suspect]
     Route: 048

REACTIONS (3)
  - RESPIRATORY DISTRESS [None]
  - SEPSIS [None]
  - STRONGYLOIDIASIS [None]
